FAERS Safety Report 24913127 (Version 4)
Quarter: 2025Q1

REPORT INFORMATION
  Report Type: Report from Study
  Country: IL (occurrence: IL)
  Receive Date: 20250201
  Receipt Date: 20250226
  Transmission Date: 20250409
  Serious: Yes (Hospitalization, Other)
  Sender: UNITED THERAPEUTICS
  Company Number: IL-UNITED THERAPEUTICS-UNT-2025-002694

PATIENT
  Age: 47 Year
  Sex: Female
  Weight: 85 kg

DRUGS (4)
  1. TREPROSTINIL SODIUM [Suspect]
     Active Substance: TREPROSTINIL SODIUM
     Indication: Pulmonary arterial hypertension
  2. TREPROSTINIL SODIUM [Suspect]
     Active Substance: TREPROSTINIL SODIUM
     Indication: Connective tissue disorder
  3. TREPROSTINIL SODIUM [Suspect]
     Active Substance: TREPROSTINIL SODIUM
  4. TREPROSTINIL SODIUM [Suspect]
     Active Substance: TREPROSTINIL SODIUM

REACTIONS (2)
  - Pulmonary arterial hypertension [Recovering/Resolving]
  - Blood test abnormal [Recovering/Resolving]

NARRATIVE: CASE EVENT DATE: 20250101
